FAERS Safety Report 4415979-1 (Version None)
Quarter: 2004Q3

REPORT INFORMATION
  Report Type: 
  Country: None (occurrence: None)
  Receive Date: 20040802
  Receipt Date: 20040727
  Transmission Date: 20050211
  Serious: Yes (Hospitalization)
  Sender: FDA-Public Use
  Company Number: 2004-07-1445

PATIENT
  Age: 44 Year
  Sex: Male

DRUGS (7)
  1. REBETOL [Suspect]
     Indication: HEPATITIS C
     Dosage: 400 MG ORAL
     Route: 048
     Dates: start: 20040116, end: 20040629
  2. INTRON A [Suspect]
     Indication: HEPATITIS C
     Dosage: 6-3 MU* INTRAMUSCULAR
     Route: 030
     Dates: start: 20040116, end: 20040615
  3. INTRON A [Suspect]
     Indication: HEPATITIS C
     Dosage: 6-3 MU* INTRAMUSCULAR
     Route: 030
     Dates: start: 20040616, end: 20040629
  4. ZERIT [Concomitant]
  5. EPIVIR [Concomitant]
  6. GASTER [Concomitant]
  7. STOCRIN (EFAVIRENZ) CAPSULES [Concomitant]

REACTIONS (1)
  - HAEMATEMESIS [None]
